FAERS Safety Report 13918215 (Version 1)
Quarter: 2017Q3

REPORT INFORMATION
  Report Type: Spontaneous
  Country: US (occurrence: US)
  Receive Date: 20170829
  Receipt Date: 20170829
  Transmission Date: 20171127
  Serious: No
  Sender: FDA-Public Use
  Company Number: US-SA-2017SA039338

PATIENT
  Age: 32 Year
  Sex: Male

DRUGS (1)
  1. FABRAZYME [Suspect]
     Active Substance: AGALSIDASE BETA
     Route: 041

REACTIONS (3)
  - Asthenia [Unknown]
  - Hypokinesia [Unknown]
  - Vomiting [Unknown]

NARRATIVE: CASE EVENT DATE: 20170302
